FAERS Safety Report 6547149-5 (Version None)
Quarter: 2010Q1

REPORT INFORMATION
  Report Type: 
  Country: None (occurrence: None)
  Receive Date: 20100122
  Receipt Date: 20100120
  Transmission Date: 20100710
  Serious: Yes (Life-Threatening, Hospitalization, Other)
  Sender: FDA-Public Use
  Company Number: CA-MERCK-1001CAN00181

PATIENT
  Age: 51 Year
  Sex: Female
  Weight: 59 kg

DRUGS (17)
  1. PRINIVIL [Suspect]
     Route: 048
  2. ALPRAZOLAM [Concomitant]
     Route: 048
  3. CLARITHROMYCIN [Suspect]
     Route: 048
  4. CALCIUM (UNSPECIFIED) [Concomitant]
     Route: 048
  5. DIMENHYDRINATE [Concomitant]
     Route: 051
  6. FLUNARIZINE HYDROCHLORIDE [Concomitant]
     Route: 048
  7. FUROSEMIDE [Concomitant]
     Route: 048
  8. SUMATRIPTAN SUCCINATE [Concomitant]
     Route: 058
  9. PREGABALIN [Concomitant]
     Route: 048
  10. MOMETASONE FUROATE [Concomitant]
     Route: 065
  11. NITRAZEPAM [Concomitant]
     Route: 048
  12. QUININE SULFATE [Concomitant]
     Route: 048
  13. PANTOPRAZOLE SODIUM [Concomitant]
     Route: 048
  14. ESTROGENS, CONJUGATED [Concomitant]
     Route: 048
  15. INFLIXIMAB [Suspect]
     Route: 042
  16. HYDROCORTISONE SODIUM SUCCINATE [Concomitant]
     Route: 030
  17. TRAZODONE HYDROCHLORIDE [Concomitant]
     Route: 048

REACTIONS (6)
  - ANAPHYLACTIC SHOCK [None]
  - BRONCHITIS [None]
  - DRUG INTERACTION [None]
  - FALL [None]
  - LOSS OF CONSCIOUSNESS [None]
  - TONGUE DISCOLOURATION [None]
